FAERS Safety Report 5889282-7 (Version None)
Quarter: 2008Q3

REPORT INFORMATION
  Report Type: 
  Country: None (occurrence: None)
  Receive Date: 20080917
  Receipt Date: 20080909
  Transmission Date: 20090109
  Serious: Yes (Death)
  Sender: FDA-Public Use
  Company Number: 2008US002353

PATIENT
  Age: 56 Year
  Sex: Male

DRUGS (1)
  1. MYCAMINE(MICAFUNGIN) INJECTION [Suspect]
     Indication: CANDIDIASIS

REACTIONS (1)
  - DEATH [None]
